FAERS Safety Report 9757920 (Version 1)
Quarter: 2013Q4

REPORT INFORMATION
  Report Type: Spontaneous
  Country: GB (occurrence: GB)
  Receive Date: 20131216
  Receipt Date: 20131216
  Transmission Date: 20140711
  Serious: Yes (Hospitalization)
  Sender: FDA-Public Use
  Company Number: GB-ACCORD-020668

PATIENT
  Age: 45 Year
  Sex: Female
  Weight: 60.32 kg

DRUGS (8)
  1. TRAMADOL [Suspect]
     Indication: ANALGESIC THERAPY
     Route: 048
     Dates: start: 20130819, end: 20130819
  2. PARACETAMOL [Concomitant]
  3. CLARITHROMYCIN [Concomitant]
  4. NOVORAPID [Concomitant]
  5. CODEINE PHOSPHATE [Concomitant]
  6. IBUPROFEN [Concomitant]
  7. LIOTHYRONINE [Concomitant]
  8. INSULIN DETEMIR [Concomitant]

REACTIONS (5)
  - Vomiting [Recovered/Resolved]
  - Tremor [Recovered/Resolved]
  - Headache [Recovered/Resolved]
  - Muscular weakness [Recovered/Resolved]
  - Malaise [Recovered/Resolved]
